FAERS Safety Report 5065638-X (Version None)
Quarter: 2006Q3

REPORT INFORMATION
  Report Type: 
  Country: None (occurrence: None)
  Receive Date: 20060724
  Receipt Date: 20060214
  Transmission Date: 20061208
  Serious: Yes (Hospitalization)
  Sender: FDA-Public Use
  Company Number: 6020502

PATIENT
  Age: 72 Year

DRUGS (1)
  1. LEVOTHYROX 100 (TABLET) (LEVOTHYROXINE SODIUM) [Suspect]
     Indication: THYROIDECTOMY
     Dosage: (100 MG, 1 D) ORAL
     Route: 048
     Dates: start: 19940101

REACTIONS (3)
  - ANGIONEUROTIC OEDEMA [None]
  - APHTHOUS STOMATITIS [None]
  - VOMITING [None]
